FAERS Safety Report 18788598 (Version 1)
Quarter: 2021Q1

REPORT INFORMATION
  Report Type: Other
  Country: US (occurrence: US)
  Receive Date: 20210125
  Receipt Date: 20210125
  Transmission Date: 20210419
  Serious: No
  Sender: FDA-Public Use
  Company Number: US-ACORDA-ACO_164032_2020

PATIENT
  Sex: Female

DRUGS (1)
  1. AMPYRA [Suspect]
     Active Substance: DALFAMPRIDINE
     Indication: PRODUCT USED FOR UNKNOWN INDICATION
     Dosage: 10 MILLIGRAM, BID (Q12H) MAY BE TAKEN WITH OR WITHOUT FOOD
     Route: 048

REACTIONS (7)
  - Fall [Unknown]
  - Loss of personal independence in daily activities [Unknown]
  - Depressed mood [Unknown]
  - Drug ineffective [Unknown]
  - Therapy cessation [Unknown]
  - Product dose omission issue [Unknown]
  - Gait disturbance [Not Recovered/Not Resolved]
